FAERS Safety Report 6559551-6 (Version None)
Quarter: 2010Q1

REPORT INFORMATION
  Report Type: 
  Country: None (occurrence: None)
  Receive Date: 20100129
  Receipt Date: 20090902
  Transmission Date: 20100710
  Serious: No
  Sender: FDA-Public Use
  Company Number: US-ABBOTT-09P-163-0595377-00

PATIENT
  Sex: Female
  Weight: 64.468 kg

DRUGS (6)
  1. HUMIRA [Suspect]
     Indication: ANKYLOSING SPONDYLITIS
     Dates: start: 20070101, end: 20070101
  2. HUMIRA [Suspect]
     Dates: start: 20080101
  3. PREDNISONE [Suspect]
     Indication: ANKYLOSING SPONDYLITIS
     Dates: start: 20070101, end: 20070101
  4. JENUVIA [Concomitant]
     Indication: DIABETES MELLITUS
  5. DIOVAN [Concomitant]
     Indication: HYPERTENSION
  6. PREVACID [Concomitant]
     Indication: GASTROOESOPHAGEAL REFLUX DISEASE

REACTIONS (9)
  - ALOPECIA [None]
  - DYSPNOEA [None]
  - GAIT DISTURBANCE [None]
  - HEADACHE [None]
  - INFLUENZA LIKE ILLNESS [None]
  - MUSCULOSKELETAL STIFFNESS [None]
  - POOR QUALITY DRUG ADMINISTERED [None]
  - SOMNOLENCE [None]
  - URTICARIA [None]
